FAERS Safety Report 24083269 (Version 1)
Quarter: 2024Q3

REPORT INFORMATION
  Report Type: Spontaneous
  Country: GB (occurrence: GB)
  Receive Date: 20240712
  Receipt Date: 20240712
  Transmission Date: 20241017
  Serious: No
  Sender: ALKEM
  Company Number: None

PATIENT
  Age: 45 Year
  Sex: Female
  Weight: 71.8 kg

DRUGS (29)
  1. TOLVAPTAN [Suspect]
     Active Substance: TOLVAPTAN
     Indication: Congenital cystic kidney disease
     Dosage: 15 MILLIGRAM (TABLET) (JINARC)
     Route: 048
     Dates: start: 20190423
  2. TOLVAPTAN [Suspect]
     Active Substance: TOLVAPTAN
     Dosage: 45 MILLIGRAM (TABLET) (JINARC)
     Route: 048
     Dates: start: 20190423
  3. TOLVAPTAN [Suspect]
     Active Substance: TOLVAPTAN
     Dosage: 30 MILLIGRAM (TABLET) (JINARC)
     Route: 048
     Dates: start: 20190528
  4. TOLVAPTAN [Suspect]
     Active Substance: TOLVAPTAN
     Dosage: 60 MILLIGRAM (TABLET) (JINARC)
     Route: 048
     Dates: start: 20190528
  5. TOLVAPTAN [Suspect]
     Active Substance: TOLVAPTAN
     Dosage: 30 MILLIGRAM (TABLET) (JINARC)
     Route: 048
     Dates: start: 20190625
  6. TOLVAPTAN [Suspect]
     Active Substance: TOLVAPTAN
     Dosage: 90 MILLIGRAM (TABLET) (JINARC)
     Route: 048
     Dates: start: 20190625
  7. TOLVAPTAN [Suspect]
     Active Substance: TOLVAPTAN
     Dosage: 30 MILLIGRAM (TABLET) (JINARC)
     Route: 048
     Dates: start: 20190723
  8. TOLVAPTAN [Suspect]
     Active Substance: TOLVAPTAN
     Dosage: 90 MILLIGRAM (TABLET) (JINARC)
     Route: 048
     Dates: start: 20190723
  9. TOLVAPTAN [Suspect]
     Active Substance: TOLVAPTAN
     Dosage: 90 MILLIGRAM (TABLET) (JINARC)
     Route: 048
     Dates: start: 20190827
  10. TOLVAPTAN [Suspect]
     Active Substance: TOLVAPTAN
     Dosage: 30 MILLIGRAM (TABLET) (JINARC)
     Route: 048
     Dates: start: 20190827
  11. TOLVAPTAN [Suspect]
     Active Substance: TOLVAPTAN
     Dosage: 90 MILLIGRAM (TABLET) (JINARC)
     Route: 048
     Dates: start: 20190924
  12. TOLVAPTAN [Suspect]
     Active Substance: TOLVAPTAN
     Dosage: 30 MILLIGRAM (TABLET) (JINARC)
     Route: 048
     Dates: start: 20190924
  13. TOLVAPTAN [Suspect]
     Active Substance: TOLVAPTAN
     Dosage: 90 MILLIGRAM (TABLET) (JINARC)
     Route: 048
     Dates: start: 20191022
  14. TOLVAPTAN [Suspect]
     Active Substance: TOLVAPTAN
     Dosage: 30 MILLIGRAM (TABLET) (JINARC)
     Route: 048
     Dates: start: 20191022
  15. TOLVAPTAN [Suspect]
     Active Substance: TOLVAPTAN
     Dosage: 90 MILLIGRAM (TABLET) (JINARC)
     Route: 048
     Dates: start: 20191126
  16. TOLVAPTAN [Suspect]
     Active Substance: TOLVAPTAN
     Dosage: 30 MILLIGRAM (TABLET) (JINARC)
     Route: 048
     Dates: start: 20191126
  17. TOLVAPTAN [Suspect]
     Active Substance: TOLVAPTAN
     Dosage: 30 MILLIGRAM (TABLET) (JINARC)
     Route: 048
     Dates: start: 20200128
  18. TOLVAPTAN [Suspect]
     Active Substance: TOLVAPTAN
     Dosage: 90 MILLIGRAM (TABLET) (JINARC)
     Route: 048
     Dates: start: 20200128
  19. TOLVAPTAN [Suspect]
     Active Substance: TOLVAPTAN
     Dosage: 90 MILLIGRAM (TABLET) (JINARC)
     Route: 048
     Dates: start: 20200225
  20. TOLVAPTAN [Suspect]
     Active Substance: TOLVAPTAN
     Dosage: 30 MILLIGRAM (TABLET) (JINARC)
     Route: 048
     Dates: start: 20200225
  21. AMLODIPINE [Concomitant]
     Active Substance: AMLODIPINE BESYLATE
     Indication: Product used for unknown indication
     Dosage: 5 MILLIGRAM, QD (PER DAY)
     Route: 048
     Dates: end: 20200225
  22. ATORVASTATIN [Concomitant]
     Active Substance: ATORVASTATIN
     Indication: Product used for unknown indication
     Dosage: 10 MILLIGRAM, QD (PER DAY)
     Route: 048
     Dates: end: 20190723
  23. ATORVASTATIN [Concomitant]
     Active Substance: ATORVASTATIN
     Dosage: 10 MILLIGRAM, QD (PER DAY)
     Route: 048
  24. ATORVASTATIN [Concomitant]
     Active Substance: ATORVASTATIN
     Dosage: 20 MILLIGRAM, QD (PER DAY)
     Route: 048
  25. DOXAZOSIN [Concomitant]
     Active Substance: DOXAZOSIN MESYLATE
     Indication: Product used for unknown indication
     Dosage: 2 MICROGRAM, QD (PER DAY)
     Route: 048
     Dates: start: 20201027
  26. FLUOXETINE [Concomitant]
     Active Substance: FLUOXETINE HYDROCHLORIDE
     Indication: Product used for unknown indication
     Dosage: 20 MILLIGRAM, QD (PER DAY)
     Route: 048
     Dates: start: 20190910
  27. PROCHLORPERAZINE [Concomitant]
     Active Substance: PROCHLORPERAZINE
     Indication: Product used for unknown indication
     Dosage: 5 MILLIGRAM, PRN (AS NECESSARY)
     Route: 048
  28. RAMIPRIL [Concomitant]
     Active Substance: RAMIPRIL
     Indication: Product used for unknown indication
     Dosage: 10 MILLIGRAM, QD (PER DAY)
     Route: 048
  29. SUMATRIPTAN [Concomitant]
     Active Substance: SUMATRIPTAN
     Indication: Product used for unknown indication
     Dosage: 50 MILLIGRAM, PRN (AS NECESSARY)
     Route: 048

REACTIONS (3)
  - Dysuria [Recovering/Resolving]
  - Urinary incontinence [Recovered/Resolved]
  - Dizziness [Recovered/Resolved]

NARRATIVE: CASE EVENT DATE: 20190501
